FAERS Safety Report 8986207 (Version 1)
Quarter: 2012Q4

REPORT INFORMATION
  Report Type: Spontaneous
  Country: None (occurrence: None)
  Receive Date: 20121217
  Receipt Date: 20121217
  Transmission Date: 20130627
  Serious: Yes (Other)
  Sender: FDA-Public Use
  Company Number: CL-455-2012

PATIENT
  Age: 25 Year
  Sex: Female
  Weight: 77 kg

DRUGS (1)
  1. CIPROFLOXACIN [Suspect]

REACTIONS (3)
  - Colour blindness acquired [None]
  - Palpitations [None]
  - Paraesthesia [None]
